FAERS Safety Report 25685078 (Version 2)
Quarter: 2025Q3

REPORT INFORMATION
  Report Type: Spontaneous
  Country: US (occurrence: US)
  Receive Date: 20250815
  Receipt Date: 20250825
  Transmission Date: 20251021
  Serious: No
  Sender: VIIV
  Company Number: US-GSKCCFUS-Case-02353895_AE-125019

PATIENT

DRUGS (1)
  1. CABOTEGRAVIR [Suspect]
     Active Substance: CABOTEGRAVIR
     Indication: Product used for unknown indication

REACTIONS (1)
  - No adverse event [Unknown]
